FAERS Safety Report 23934346 (Version 1)
Quarter: 2024Q2

REPORT INFORMATION
  Report Type: Spontaneous
  Country: UA (occurrence: UA)
  Receive Date: 20240603
  Receipt Date: 20240603
  Transmission Date: 20240716
  Serious: Yes (Life-Threatening)
  Sender: FDA-Public Use
  Company Number: UA-BoehringerIngelheim-2024-BI-031460

PATIENT
  Age: 44 Year
  Weight: 130 kg

DRUGS (1)
  1. PRADAXA [Suspect]
     Active Substance: DABIGATRAN ETEXILATE MESYLATE
     Indication: Atrial fibrillation
     Dates: start: 20230910, end: 20240516

REACTIONS (2)
  - Hemiparesis [Recovered/Resolved]
  - Dysarthria [Recovered/Resolved]
